FAERS Safety Report 15351980 (Version 1)
Quarter: 2018Q3

REPORT INFORMATION
  Report Type: Spontaneous
  Country: GB (occurrence: GB)
  Receive Date: 20180905
  Receipt Date: 20180905
  Transmission Date: 20181010
  Serious: Yes (Other)
  Sender: FDA-Public Use
  Company Number: GB-PFIZER INC-2018355630

PATIENT
  Sex: Male

DRUGS (1)
  1. VANCOMYCIN HCL [Suspect]
     Active Substance: VANCOMYCIN HYDROCHLORIDE
     Indication: ABDOMINAL SEPSIS
     Dosage: 1500 MG, 1X/DAY
     Route: 042
     Dates: start: 20180805, end: 20180806

REACTIONS (1)
  - Acute kidney injury [Recovered/Resolved]
